FAERS Safety Report 10407479 (Version 1)
Quarter: 2014Q3

REPORT INFORMATION
  Report Type: Spontaneous
  Country: JP (occurrence: JP)
  Receive Date: 20140825
  Receipt Date: 20140825
  Transmission Date: 20150326
  Serious: Yes (Other)
  Sender: FDA-Public Use
  Company Number: PHHY2014JP103787

PATIENT
  Age: 49 Year
  Sex: Female

DRUGS (2)
  1. CICLOSPORIN [Suspect]
     Active Substance: CYCLOSPORINE
     Indication: SCLERITIS
     Dosage: 100 MG, PER DAY
  2. PREDNISOLONE. [Suspect]
     Active Substance: PREDNISOLONE
     Dosage: 10 MG, PER DAY

REACTIONS (4)
  - Choroid melanoma [Unknown]
  - Ulcerative keratitis [Unknown]
  - Retinal detachment [Unknown]
  - Eye inflammation [Unknown]
